FAERS Safety Report 12444212 (Version 1)
Quarter: 2016Q2

REPORT INFORMATION
  Report Type: Spontaneous
  Country: US (occurrence: US)
  Receive Date: 20160607
  Receipt Date: 20160607
  Transmission Date: 20160815
  Serious: No
  Sender: FDA-Public Use
  Company Number: US-SA-2016SA065173

PATIENT
  Sex: Female

DRUGS (6)
  1. SOLOSTAR [Concomitant]
     Active Substance: DEVICE
  2. METFORMIN [Suspect]
     Active Substance: METFORMIN HYDROCHLORIDE
     Route: 065
  3. FUROSEMIDE. [Concomitant]
     Active Substance: FUROSEMIDE
  4. TOUJEO [Suspect]
     Active Substance: INSULIN GLARGINE
     Route: 065
  5. NOVOLOG [Suspect]
     Active Substance: INSULIN ASPART
     Route: 065
  6. FUROSEMIDE. [Concomitant]
     Active Substance: FUROSEMIDE
     Dosage: HAD TO INCREASE HER FUROSEMIDE

REACTIONS (4)
  - Weight decreased [Unknown]
  - Joint swelling [Unknown]
  - Fluid retention [Unknown]
  - Blood glucose increased [Unknown]
